FAERS Safety Report 8154714-0 (Version None)
Quarter: 2012Q1

REPORT INFORMATION
  Report Type: 
  Country: None (occurrence: None)
  Receive Date: 20120221
  Receipt Date: 20120208
  Transmission Date: 20120608
  Serious: Yes (Other)
  Sender: FDA-Public Use
  Company Number: PHHY2011JP106155

PATIENT
  Age: 73 Year
  Sex: Male

DRUGS (2)
  1. TASIGNA [Suspect]
     Indication: CHRONIC MYELOID LEUKAEMIA
     Dosage: 800 MG, DAILY
     Route: 048
     Dates: start: 20111117, end: 20111124
  2. TASIGNA [Suspect]
     Dosage: 400 MG, DAILY
     Dates: start: 20111207

REACTIONS (2)
  - RASH [None]
  - WOLFF-PARKINSON-WHITE SYNDROME [None]
